FAERS Safety Report 13252456 (Version 1)
Quarter: 2017Q1

REPORT INFORMATION
  Report Type: Spontaneous
  Country: DE (occurrence: DE)
  Receive Date: 20170220
  Receipt Date: 20170220
  Transmission Date: 20170428
  Serious: Yes (Other)
  Sender: FDA-Public Use
  Company Number: DE-JNJFOC-20170218316

PATIENT
  Age: 44 Year
  Sex: Female
  Weight: 112 kg

DRUGS (1)
  1. XARELTO [Suspect]
     Active Substance: RIVAROXABAN
     Indication: THROMBOSIS
     Route: 048
     Dates: start: 20170201

REACTIONS (5)
  - Blood urine present [Unknown]
  - Respiratory distress [Unknown]
  - Pain in extremity [Unknown]
  - Renal pain [Unknown]
  - Malaise [Unknown]

NARRATIVE: CASE EVENT DATE: 20170203
